FAERS Safety Report 12559377 (Version 7)
Quarter: 2017Q2

REPORT INFORMATION
  Report Type: Spontaneous
  Country: GB (occurrence: GB)
  Receive Date: 20160715
  Receipt Date: 20170418
  Transmission Date: 20170830
  Serious: Yes (Other)
  Sender: FDA-Public Use
  Company Number: GB-ACCORD-042461

PATIENT
  Age: 56 Year
  Sex: Male

DRUGS (2)
  1. SIMPONI [Suspect]
     Active Substance: GOLIMUMAB
     Indication: PRODUCT USED FOR UNKNOWN INDICATION
     Route: 058
     Dates: start: 20160417, end: 20170217
  2. METHOTREXATE. [Suspect]
     Active Substance: METHOTREXATE
     Indication: PRODUCT USED FOR UNKNOWN INDICATION
     Route: 065

REACTIONS (12)
  - Oral candidiasis [Not Recovered/Not Resolved]
  - Rubber sensitivity [Unknown]
  - Urinary tract infection [Unknown]
  - Injection site reaction [Unknown]
  - Headache [Unknown]
  - Injection site vesicles [Unknown]
  - Lower respiratory tract infection [Not Recovered/Not Resolved]
  - Intervertebral disc disorder [Unknown]
  - Asthenia [Unknown]
  - Fungal infection [Unknown]
  - Hypertension [Unknown]
  - Pain [Unknown]

NARRATIVE: CASE EVENT DATE: 2016
